FAERS Safety Report 6122309-6 (Version None)
Quarter: 2009Q1

REPORT INFORMATION
  Report Type: 
  Country: None (occurrence: None)
  Receive Date: 20090318
  Receipt Date: 20090313
  Transmission Date: 20090719
  Serious: Yes (Death, Hospitalization, Other)
  Sender: FDA-Public Use
  Company Number: ES-BAYER-200913512GPV

PATIENT
  Age: 60 Year
  Sex: Male
  Weight: 74 kg

DRUGS (15)
  1. ZEVALIN [Suspect]
     Indication: STEM CELL TRANSPLANT
     Dosage: TOTAL DAILY DOSE: 31 MCI
     Route: 042
     Dates: start: 20081010, end: 20081010
  2. YTRACIS [Suspect]
     Indication: STEM CELL TRANSPLANT
     Dosage: AS USED: 31 MCI
     Route: 042
     Dates: start: 20081010, end: 20081010
  3. FLUDARABINE PHOSPHATE [Suspect]
     Indication: STEM CELL TRANSPLANT
  4. RITUXIMAB [Suspect]
     Indication: STEM CELL TRANSPLANT
     Dosage: TOTAL DAILY DOSE: 513 MG
     Route: 042
     Dates: start: 20081010, end: 20081010
  5. RITUXIMAB [Suspect]
     Dosage: TOTAL DAILY DOSE: 513 MG
     Route: 042
     Dates: start: 20081003, end: 20081003
  6. MELPHALAN [Suspect]
     Indication: STEM CELL TRANSPLANT
  7. THIOTEPA [Suspect]
     Indication: B-CELL LYMPHOMA
  8. PREDNISONE [Concomitant]
     Indication: PROPHYLAXIS AGAINST GRAFT VERSUS HOST DISEASE
     Route: 042
     Dates: start: 20090209
  9. MMF [Concomitant]
     Indication: PROPHYLAXIS AGAINST GRAFT VERSUS HOST DISEASE
     Route: 042
     Dates: start: 20080101
  10. CSA [Concomitant]
     Indication: PROPHYLAXIS AGAINST GRAFT VERSUS HOST DISEASE
     Route: 042
     Dates: start: 20080101, end: 20090223
  11. ITRACONAZOLE [Concomitant]
     Indication: ANTIFUNGAL PROPHYLAXIS
     Route: 048
     Dates: start: 20090209, end: 20090216
  12. CEFEPIME [Concomitant]
     Indication: PYREXIA
     Route: 042
     Dates: start: 20090219, end: 20090224
  13. ABELCET [Concomitant]
     Indication: FUNGAL INFECTION
     Route: 042
     Dates: start: 20090217, end: 20090222
  14. CASPOFUNGIN [Concomitant]
     Indication: FUNGAL INFECTION
     Route: 042
     Dates: start: 20090223, end: 20090226
  15. VANCOMYCINE [Concomitant]
     Indication: INFECTION
     Route: 042
     Dates: start: 20090218, end: 20090220

REACTIONS (14)
  - ACUTE RESPIRATORY FAILURE [None]
  - CATHETER RELATED INFECTION [None]
  - CYTOMEGALOVIRUS COLITIS [None]
  - CYTOMEGALOVIRUS INFECTION [None]
  - HEPATIC FUNCTION ABNORMAL [None]
  - MULTI-ORGAN FAILURE [None]
  - PANCYTOPENIA [None]
  - PSEUDOMONAL BACTERAEMIA [None]
  - PYREXIA [None]
  - RENAL IMPAIRMENT [None]
  - SEPTIC SHOCK [None]
  - SKIN INFECTION [None]
  - STAPHYLOCOCCAL BACTERAEMIA [None]
  - THROMBOCYTOPENIA [None]
